FAERS Safety Report 19801067 (Version 11)
Quarter: 2022Q2

REPORT INFORMATION
  Report Type: Report from Study
  Country: US (occurrence: US)
  Receive Date: 20210907
  Receipt Date: 20220404
  Transmission Date: 20220721
  Serious: Yes (Life-Threatening, Hospitalization, Other)
  Sender: FDA-Public Use
  Company Number: US-G1-000333

PATIENT
  Age: 48 Year
  Sex: Male
  Weight: 80.2 kg

DRUGS (33)
  1. TRILACICLIB [Suspect]
     Active Substance: TRILACICLIB
     Indication: Myelosuppression
     Dosage: TIME INTERVAL: CYCLICAL; 240 MG/M2 ON DAY 1 AND 2 OF EACH CYCLE
     Route: 041
     Dates: start: 20210630, end: 20210812
  2. TRILACICLIB [Suspect]
     Active Substance: TRILACICLIB
     Indication: Myelosuppression
     Dosage: TIME INTERVAL: CYCLICAL; 240 MG/M2 ON DAY 1 AND 2 OF EACH CYCLE
     Route: 041
     Dates: start: 20210908
  3. BEVACIZUMAB [Suspect]
     Active Substance: BEVACIZUMAB
     Indication: Colorectal cancer metastatic
     Dosage: TIME INTERVAL: CYCLICAL; 5 MG/KG ON DAY 1 OF EACH CYCLE
     Route: 041
     Dates: start: 20210630, end: 20210811
  4. FLUOROURACIL [Suspect]
     Active Substance: FLUOROURACIL
     Indication: Colorectal cancer metastatic
     Dosage: TIME INTERVAL: CYCLICAL; 2400 MG/M2 BY CONTINUOUS INFUSION OVER 48 HOURS STARTING ON DAY 1 OF EAC...
     Route: 041
     Dates: start: 20210630, end: 20210813
  5. FLUOROURACIL [Suspect]
     Active Substance: FLUOROURACIL
     Indication: Colorectal cancer metastatic
     Dosage: TIME INTERVAL: CYCLICAL; 2400 MG/M2 BY CONTINUOUS INFUSION OVER 48 HOURS STARTING ON DAY 1 OF EAC...
     Route: 041
     Dates: start: 20210908
  6. IRINOTECAN [Suspect]
     Active Substance: IRINOTECAN
     Indication: Colorectal cancer metastatic
     Dosage: TIME INTERVAL: CYCLICAL; 165 MG/M2 ON DAY 1 OF EACH CYCLE
     Route: 041
     Dates: start: 20210630, end: 20210811
  7. IRINOTECAN [Suspect]
     Active Substance: IRINOTECAN
     Indication: Colorectal cancer metastatic
     Dosage: TIME INTERVAL: CYCLICAL; 125 MG/M2 ON DAY 1 OF EACH CYCLE
     Route: 041
     Dates: start: 20210908
  8. LEUCOVORIN [Suspect]
     Active Substance: LEUCOVORIN
     Indication: Colorectal cancer metastatic
     Dosage: TIME INTERVAL: CYCLICAL; 200 MG/M2 ON DAY 1 OF EACH CYCLE
     Route: 041
     Dates: start: 20210630, end: 20210811
  9. LEUCOVORIN [Suspect]
     Active Substance: LEUCOVORIN
     Indication: Colorectal cancer metastatic
     Dosage: TIME INTERVAL: CYCLICAL; 400 MG/M2 ON DAY 1 OF EACH CYCLE
     Route: 041
     Dates: start: 20210908
  10. OXALIPLATIN [Suspect]
     Active Substance: OXALIPLATIN
     Indication: Colorectal cancer metastatic
     Dosage: TIME INTERVAL: CYCLICAL; 85 MG/M2 ON DAY 1 OF EACH CYCLE
     Route: 041
     Dates: start: 20210630, end: 20210811
  11. OXALIPLATIN [Suspect]
     Active Substance: OXALIPLATIN
     Indication: Colorectal cancer metastatic
     Dosage: TIME INTERVAL: CYCLICAL; 85 MG/M2 ON DAY 1 OF EACH CYCLE
     Route: 041
     Dates: start: 20210908
  12. 1247550 (GLOBALC3Sep20): Prilosec [Concomitant]
     Indication: Dyspepsia
     Route: 048
     Dates: start: 2008
  13. 1251764 (GLOBALC3Sep20): Claritin [Concomitant]
     Indication: Seasonal allergy
     Dosage: TIME INTERVAL: AS NECESSARY
     Route: 048
     Dates: start: 2010
  14. 1610929 (GLOBALC3Sep20): Levetiracetam [Concomitant]
     Indication: Seizure
     Route: 048
     Dates: start: 20210514
  15. 2787846 (GLOBALC3Sep20): Oxycodone [Concomitant]
     Indication: Arthralgia
     Dosage: TIME INTERVAL: AS NECESSARY
     Route: 048
     Dates: start: 20210521
  16. 1224868 (GLOBALC3Sep20): Tylenol [Concomitant]
     Indication: Arthralgia
     Dosage: TIME INTERVAL: AS NECESSARY
     Route: 048
     Dates: start: 20210401
  17. 340333 (GLOBALC3Sep20): Atropine [Concomitant]
     Indication: Prophylaxis
     Route: 042
     Dates: start: 20210630
  18. 4086519 (GLOBALC3Sep20): Cinvanti [Concomitant]
     Indication: Prophylaxis
     Route: 042
     Dates: start: 20210630
  19. 1264475 (GLOBALC3Sep20): Aloxi [Concomitant]
     Indication: Prophylaxis
     Route: 042
     Dates: start: 20210630
  20. 1265079 (GLOBALC3Sep20): Decadron [Concomitant]
     Indication: Prophylaxis
     Route: 042
     Dates: start: 20210630
  21. 1265079 (GLOBALC3Sep20): Decadron [Concomitant]
     Indication: Prophylaxis
     Dosage: TIME INTERVAL: 0.33333333 DAYS
     Route: 048
     Dates: start: 20210701
  22. 1226812 (GLOBALC3Sep20): Klor-con [Concomitant]
     Indication: Hypokalaemia
     Route: 048
     Dates: start: 20210701, end: 20210707
  23. 1226812 (GLOBALC3Sep20): Klor-con [Concomitant]
     Indication: Hypokalaemia
     Route: 048
     Dates: start: 20210715
  24. 1328969 (GLOBALC3Sep20): Zanaflex [Concomitant]
     Indication: Myalgia
     Dosage: AT NIGHT
     Route: 048
     Dates: start: 20210701
  25. 1263320 (GLOBALC3Sep20): Ativan [Concomitant]
     Indication: Insomnia
     Dosage: TIME INTERVAL: AS NECESSARY; HS PRN
     Route: 048
     Dates: start: 20210707
  26. 4519200 (GLOBALC3Sep20): PROCHLORPERAZINE [Concomitant]
     Indication: Nausea
     Dosage: TIME INTERVAL: AS NECESSARY
     Route: 048
     Dates: start: 20210701
  27. 2455124 (GLOBALC3Sep20): HYOSCYAMINE [Concomitant]
     Indication: Abdominal pain upper
     Dosage: TIME INTERVAL: AS NECESSARY
     Route: 048
     Dates: start: 20210715
  28. 1325787 (GLOBALC3Sep20): Dicyclomine [Concomitant]
     Indication: Abdominal pain upper
     Dosage: TIME INTERVAL: AS NECESSARY
     Route: 048
     Dates: start: 2021
  29. 1325245 (GLOBALC3Sep20): Calcium [Concomitant]
     Indication: Hypokalaemia
     Route: 048
     Dates: start: 20210803
  30. 2650411 (GLOBALC3Sep20): Eliquis [Concomitant]
     Indication: Pulmonary embolism
     Route: 048
     Dates: start: 20210820
  31. 2650411 (GLOBALC3Sep20): Eliquis [Concomitant]
     Indication: Pulmonary embolism
     Route: 048
     Dates: start: 2021
  32. 1262395 (GLOBALC3Sep20): Lisinopril [Concomitant]
     Indication: Hypertension
     Route: 048
     Dates: start: 20210809
  33. 3614722 (GLOBALC3Sep20): Magic Mouthwash [Concomitant]
     Indication: Mucosal inflammation
     Dosage: TIME INTERVAL: AS NECESSARY; S+S
     Dates: start: 20210820

REACTIONS (3)
  - Hypokalaemia [Recovered/Resolved]
  - Pulmonary embolism [Recovered/Resolved]
  - Pulmonary embolism [Recovered/Resolved with Sequelae]

NARRATIVE: CASE EVENT DATE: 20210820
